FAERS Safety Report 6036383-9 (Version None)
Quarter: 2009Q1

REPORT INFORMATION
  Report Type: 
  Country: None (occurrence: None)
  Receive Date: 20090112
  Receipt Date: 20081217
  Transmission Date: 20090719
  Serious: Yes (Other)
  Sender: FDA-Public Use
  Company Number: 133358

PATIENT
  Age: 64 Year
  Sex: Female

DRUGS (2)
  1. PACLITAXEL [Suspect]
     Indication: FALLOPIAN TUBE CANCER
     Dosage: 135 MG/M2, INTRAVENOUS
     Route: 042
  2. CISPLATIN [Suspect]
     Indication: FALLOPIAN TUBE CANCER
     Dosage: 100 MG/M2, INTRAPERITONEAL
     Route: 033

REACTIONS (9)
  - APHASIA [None]
  - BLOOD POTASSIUM DECREASED [None]
  - BLOOD SODIUM DECREASED [None]
  - GASTROINTESTINAL SOUNDS ABNORMAL [None]
  - HYPERTENSION [None]
  - NAUSEA [None]
  - PLATELET COUNT DECREASED [None]
  - REVERSIBLE POSTERIOR LEUKOENCEPHALOPATHY SYNDROME [None]
  - VOMITING [None]
